FAERS Safety Report 6069745-4 (Version None)
Quarter: 2009Q1

REPORT INFORMATION
  Report Type: 
  Country: None (occurrence: None)
  Receive Date: 20090209
  Receipt Date: 20090129
  Transmission Date: 20090719
  Serious: Yes (Death)
  Sender: FDA-Public Use
  Company Number: US-AMGEN-US331162

PATIENT
  Sex: Male

DRUGS (1)
  1. ENBREL [Suspect]
     Indication: HEPATITIS ALCOHOLIC
     Route: 058
     Dates: start: 20061122

REACTIONS (1)
  - DEATH [None]
